FAERS Safety Report 8031320-X (Version None)
Quarter: 2012Q1

REPORT INFORMATION
  Report Type: 
  Country: None (occurrence: None)
  Receive Date: 20120109
  Receipt Date: 20120105
  Transmission Date: 20120608
  Serious: Yes (Hospitalization)
  Sender: FDA-Public Use
  Company Number: NZ-GLAXOSMITHKLINE-B0699340A

PATIENT
  Sex: Male
  Weight: 72 kg

DRUGS (8)
  1. BENDROFLUAZIDE [Concomitant]
     Dosage: 2.5MG PER DAY
     Route: 048
  2. THALIDOMIDE [Suspect]
     Indication: MULTIPLE MYELOMA
     Dosage: 100MG PER DAY
     Route: 048
     Dates: start: 20101101
  3. METOPROLOL TARTRATE [Concomitant]
     Dosage: 95MG PER DAY
     Route: 048
  4. PREDNISONE TAB [Suspect]
     Indication: MULTIPLE MYELOMA
     Dosage: 140MG UNKNOWN
     Route: 065
     Dates: start: 20101101
  5. BENDROFLUAZIDE [Concomitant]
     Indication: DIURETIC THERAPY
     Dosage: 2.5MG PER DAY
     Route: 048
     Dates: start: 20070101
  6. MELPHALAN [Suspect]
     Indication: MULTIPLE MYELOMA
     Dosage: 8MG UNKNOWN
     Route: 065
     Dates: start: 20101101
  7. METOPROLOL TARTRATE [Concomitant]
     Indication: TACHYCARDIA
     Dosage: 95MG TWICE PER DAY
     Route: 048
     Dates: start: 20101005
  8. WARFARIN SODIUM [Concomitant]
     Indication: ANTICOAGULANT THERAPY
     Route: 048
     Dates: start: 20070101

REACTIONS (2)
  - NEUTROPENIA [None]
  - DIARRHOEA [None]
